FAERS Safety Report 5720594-3 (Version None)
Quarter: 2008Q2

REPORT INFORMATION
  Report Type: 
  Country: None (occurrence: None)
  Receive Date: 20080425
  Receipt Date: 20080425
  Transmission Date: 20081010
  Serious: Yes (Hospitalization)
  Sender: FDA-Public Use
  Company Number: None

PATIENT
  Age: 85 Year
  Sex: Male
  Weight: 61.8 kg

DRUGS (10)
  1. MITOXANTRONE [Suspect]
     Indication: PROSTATE CANCER
     Dosage: 12 MG/M2 Q3W - INTRAVENOUS DRIP
     Route: 041
     Dates: start: 20080310, end: 20080310
  2. PREDNISONE TAB [Suspect]
     Dosage: 10 MG QD - ORAL
     Route: 048
     Dates: start: 20080310, end: 20080314
  3. LEUPROLIDE ACETATE [Concomitant]
  4. PROCHLORPERAZINE EDISYLATE [Concomitant]
  5. LANSOPRAZOLE [Concomitant]
  6. LORTAB [Concomitant]
  7. IBUPROFEN TABLETS [Concomitant]
  8. VITAMIN CAP [Concomitant]
  9. VALSARTAN [Concomitant]
  10. ACETYLSALICYLIC ACID SRT [Concomitant]

REACTIONS (7)
  - BIFASCICULAR BLOCK [None]
  - CAROTID ARTERIOSCLEROSIS [None]
  - DIZZINESS [None]
  - ELECTROCARDIOGRAM QRS COMPLEX PROLONGED [None]
  - LEFT VENTRICULAR HYPERTROPHY [None]
  - PRESYNCOPE [None]
  - SYNCOPE [None]
